FAERS Safety Report 17064177 (Version 1)
Quarter: 2019Q4

REPORT INFORMATION
  Report Type: Spontaneous
  Country: IT (occurrence: IT)
  Receive Date: 20191122
  Receipt Date: 20191122
  Transmission Date: 20200122
  Serious: Yes (Other)
  Sender: FDA-Public Use
  Company Number: IT-PFIZER INC-2019499852

PATIENT
  Age: 44 Year
  Sex: Male

DRUGS (6)
  1. FLECAINIDE AUROBINDO [Concomitant]
  2. EUTIROX [Concomitant]
     Active Substance: LEVOTHYROXINE SODIUM
  3. XANAX [Suspect]
     Active Substance: ALPRAZOLAM
     Indication: PANIC ATTACK
     Dosage: 1 MG, 1X/DAY
     Route: 048
  4. TAREG [Concomitant]
     Active Substance: VALSARTAN
  5. TRITTICO [Concomitant]
     Active Substance: TRAZODONE HYDROCHLORIDE
  6. OMEPRAZOLE. [Concomitant]
     Active Substance: OMEPRAZOLE

REACTIONS (3)
  - Feeling jittery [Recovering/Resolving]
  - Therapy non-responder [Recovering/Resolving]
  - Panic attack [Recovering/Resolving]

NARRATIVE: CASE EVENT DATE: 20191003
